FAERS Safety Report 6093291-5 (Version None)
Quarter: 2009Q1

REPORT INFORMATION
  Report Type: 
  Country: None (occurrence: None)
  Receive Date: 20090225
  Receipt Date: 20090225
  Transmission Date: 20090719
  Serious: Yes (Disabling)
  Sender: FDA-Public Use
  Company Number: None

PATIENT
  Sex: Female

DRUGS (1)
  1. ZICAM (NASAL SPRAY) MATRIXXX PARENT COMPANY [Suspect]
     Indication: PROPHYLAXIS
     Dosage: 1 DROP EA NOSTRIL 8 HRS PURCHASED FEB 2007
     Dates: start: 20080401

REACTIONS (3)
  - AGEUSIA [None]
  - ANOSMIA [None]
  - BURNING SENSATION [None]
